FAERS Safety Report 8044717-9 (Version None)
Quarter: 2012Q1

REPORT INFORMATION
  Report Type: 
  Country: None (occurrence: None)
  Receive Date: 20120113
  Receipt Date: 20120109
  Transmission Date: 20120608
  Serious: Yes (Other)
  Sender: FDA-Public Use
  Company Number: US-PFIZER INC-2012007193

PATIENT
  Sex: Female

DRUGS (1)
  1. LYRICA [Suspect]
     Dosage: UNK

REACTIONS (6)
  - INFECTION [None]
  - DRUG INTOLERANCE [None]
  - VISUAL IMPAIRMENT [None]
  - FIBROMYALGIA [None]
  - ASTHENIA [None]
  - MYOCARDIAL INFARCTION [None]
